FAERS Safety Report 8604697-1 (Version None)
Quarter: 2012Q3

REPORT INFORMATION
  Report Type: 
  Country: None (occurrence: None)
  Receive Date: 20120808
  Receipt Date: 20120808
  Transmission Date: 20120928
  Serious: Yes (Hospitalization)
  Sender: FDA-Public Use
  Company Number: None

PATIENT
  Age: 81 Year
  Sex: Female
  Weight: 47.6277 kg

DRUGS (2)
  1. DEXILANT [Suspect]
     Indication: GASTROOESOPHAGEAL REFLUX DISEASE
     Dosage: 60 MG ONCE DAILY PO 2-3 YEARS
     Route: 048
  2. DEXILANT [Suspect]
     Indication: IMPAIRED GASTRIC EMPTYING
     Dosage: 60 MG ONCE DAILY PO 2-3 YEARS
     Route: 048

REACTIONS (3)
  - TRANSIENT ISCHAEMIC ATTACK [None]
  - DYSPNOEA [None]
  - VISION BLURRED [None]
